FAERS Safety Report 5057818-4 (Version None)
Quarter: 2006Q3

REPORT INFORMATION
  Report Type: 
  Country: None (occurrence: None)
  Receive Date: 20060721
  Receipt Date: 20060302
  Transmission Date: 20061208
  Serious: No
  Sender: FDA-Public Use
  Company Number: US-GLAXOSMITHKLINE-A0595893A

PATIENT
  Age: 66 Year
  Sex: Male

DRUGS (9)
  1. AVANDIA [Suspect]
     Dosage: 2MG PER DAY
     Route: 048
     Dates: start: 20050806
  2. GLIPIZIDE [Concomitant]
  3. GABAPENTIN [Concomitant]
  4. ATORVASTATIN CALCIUM [Concomitant]
  5. ALLOPURINOL [Concomitant]
  6. LOSARTAN POSTASSIUM [Concomitant]
  7. SILDENAFIL CITRATE [Concomitant]
  8. FLUTICASONE PROPIONATE [Concomitant]
  9. LORATADINE [Concomitant]

REACTIONS (1)
  - MEDICATION RESIDUE [None]
